FAERS Safety Report 9346340 (Version 1)
Quarter: 2013Q2

REPORT INFORMATION
  Report Type: Spontaneous
  Country: GB (occurrence: GB)
  Receive Date: 20130613
  Receipt Date: 20130613
  Transmission Date: 20140414
  Serious: Yes (Hospitalization)
  Sender: FDA-Public Use
  Company Number: GB-B.I. PHARMACEUTICALS,INC./RIDGEFIELD-2013-BI-16716GD

PATIENT
  Age: 25 Year
  Sex: Male

DRUGS (3)
  1. VIRAMUNE [Suspect]
     Indication: PROPHYLAXIS AGAINST HIV INFECTION
  2. STAVUDINE [Concomitant]
     Indication: PROPHYLAXIS AGAINST HIV INFECTION
  3. LAMIVUDINE [Concomitant]
     Indication: PROPHYLAXIS AGAINST HIV INFECTION

REACTIONS (2)
  - Stevens-Johnson syndrome [Unknown]
  - Tachycardia [Unknown]
